FAERS Safety Report 4685721-8 (Version None)
Quarter: 2005Q2

REPORT INFORMATION
  Report Type: 
  Country: None (occurrence: None)
  Receive Date: 20050608
  Receipt Date: 20050525
  Transmission Date: 20051028
  Serious: Yes (Other)
  Sender: FDA-Public Use
  Company Number: 2005079795

PATIENT
  Age: 19 Year
  Sex: Male
  Weight: 61.2356 kg

DRUGS (3)
  1. UNISOM [Suspect]
     Dosage: 8 TO 10 TABS NIGHTLY, ORAL
     Route: 048
     Dates: start: 20050523, end: 20050524
  2. TEMAZEPAM [Concomitant]
  3. TACROLIMUS (TACROLIMUS) [Concomitant]

REACTIONS (1)
  - OVERDOSE [None]
